FAERS Safety Report 4955468-9 (Version None)
Quarter: 2006Q1

REPORT INFORMATION
  Report Type: 
  Country: None (occurrence: None)
  Receive Date: 20060328
  Receipt Date: 20060223
  Transmission Date: 20060701
  Serious: Yes (Other)
  Sender: FDA-Public Use
  Company Number: US-GLAXOSMITHKLINE-A0596816A

PATIENT
  Age: 53 Year
  Sex: Female
  Weight: 68.2 kg

DRUGS (7)
  1. AVANDIA [Suspect]
     Indication: DIABETES MELLITUS
     Dosage: 8MG PER DAY
     Route: 048
     Dates: end: 20051216
  2. LANTUS [Concomitant]
     Indication: DIABETES MELLITUS
     Dosage: 55UNIT PER DAY
     Route: 058
  3. HUMALOG [Concomitant]
     Indication: DIABETES MELLITUS
     Dosage: 10UNIT TWICE PER DAY
     Route: 058
  4. ALTACE [Concomitant]
     Indication: PROPHYLAXIS
     Dosage: 2.5MG PER DAY
     Route: 048
  5. VYTORIN [Concomitant]
     Route: 048
     Dates: end: 20060131
  6. ASPIRIN [Concomitant]
     Indication: PROPHYLAXIS
     Dosage: 81MG PER DAY
     Route: 048
  7. LEVOTHYROXINE SODIUM [Concomitant]
     Indication: DRUG USE FOR UNKNOWN INDICATION
     Dosage: 88MCG PER DAY
     Route: 048

REACTIONS (3)
  - DIABETIC RETINOPATHY [None]
  - MACULAR OEDEMA [None]
  - VISUAL ACUITY REDUCED [None]
